FAERS Safety Report 22295890 (Version 1)
Quarter: 2023Q2

REPORT INFORMATION
  Report Type: Spontaneous
  Country: US (occurrence: None)
  Receive Date: 20230507
  Receipt Date: 20230507
  Transmission Date: 20230721
  Serious: Yes (Disabling, Other)
  Sender: FDA-Public Use
  Company Number: None

PATIENT
  Age: 28 Year
  Sex: Female
  Weight: 112.5 kg

DRUGS (1)
  1. OFLOXACIN OPHTHALMIC [Suspect]
     Active Substance: OFLOXACIN
     Indication: Eye infection
     Dates: start: 20230304, end: 20230325

REACTIONS (5)
  - Infection [None]
  - Eye infection [None]
  - Therapeutic product effect incomplete [None]
  - Instillation site irritation [None]
  - Instillation site irritation [None]

NARRATIVE: CASE EVENT DATE: 20230411
